FAERS Safety Report 10626556 (Version 1)
Quarter: 2014Q4

REPORT INFORMATION
  Report Type: Spontaneous
  Country: US (occurrence: None)
  Receive Date: 20141121
  Receipt Date: 20141121
  Transmission Date: 20150529
  Serious: No
  Sender: FDA-Public Use
  Company Number: 163-10004-14092737

PATIENT
  Age: 63 Year
  Sex: Female

DRUGS (9)
  1. NORCO (PARACETAMOL , HYDROCODONE BITARTRATE) [Concomitant]
  2. PREDNISONE (PREDNISONE) [Concomitant]
     Active Substance: PREDNISONE
  3. OTEZLA [Suspect]
     Active Substance: APREMILAST
     Indication: PSORIATIC ARTHROPATHY
     Route: 048
     Dates: start: 20140815
  4. FLEXERIL [Concomitant]
     Active Substance: CYCLOBENZAPRINE HYDROCHLORIDE
  5. ABILIFY [Concomitant]
     Active Substance: ARIPIPRAZOLE
  6. CELEXIA (CITALOPRAM HYDROBROMIDE) [Concomitant]
  7. METHOTREXATE (METHOTREXATE) [Concomitant]
     Active Substance: METHOTREXATE
  8. NEUROTRONIN (PARACETAMOL, HYDROCODONE BITARTRATE) [Concomitant]
  9. FOLIC ACID (FOLIC ACID) [Concomitant]
     Active Substance: FOLIC ACID

REACTIONS (1)
  - Nausea [None]

NARRATIVE: CASE EVENT DATE: 201408
